FAERS Safety Report 8822843 (Version 2)
Quarter: 2012Q4

REPORT INFORMATION
  Report Type: 
  Country: US (occurrence: US)
  Receive Date: 20121003
  Receipt Date: 20121105
  Transmission Date: 20130627
  Serious: Yes (Other)
  Sender: FDA-Public Use
  Company Number: US-BAYER-2012-095089

PATIENT
  Age: 69 Year
  Sex: Male

DRUGS (6)
  1. BETASERON [Suspect]
     Indication: SECONDARY PROGRESSIVE MULTIPLE SCLEROSIS
     Dosage: UNK
     Dates: start: 20000320, end: 20070622
  2. BETASERON [Suspect]
     Indication: SECONDARY PROGRESSIVE MULTIPLE SCLEROSIS
     Dosage: UNK
     Dates: start: 20070726, end: 20110407
  3. BETASERON [Suspect]
     Indication: SECONDARY PROGRESSIVE MULTIPLE SCLEROSIS
     Dosage: UNK
     Dates: start: 20120310, end: 20120320
  4. BETASERON [Suspect]
     Indication: SECONDARY PROGRESSIVE MULTIPLE SCLEROSIS
     Dosage: 8 miu, QOD
     Route: 058
     Dates: start: 20120405, end: 20120925
  5. PREDNISONE [Suspect]
  6. PLAVIX [Concomitant]
     Indication: STROKE

REACTIONS (13)
  - Diverticulitis intestinal haemorrhagic [Not Recovered/Not Resolved]
  - Cerebrovascular accident [Not Recovered/Not Resolved]
  - Cerebrovascular accident [Recovering/Resolving]
  - Aphasia [Recovering/Resolving]
  - Aphagia [Recovering/Resolving]
  - Mobility decreased [Recovering/Resolving]
  - Rash pustular [None]
  - Skin haemorrhage [None]
  - Malaise [Not Recovered/Not Resolved]
  - Furuncle [Recovering/Resolving]
  - Hypertension [Not Recovered/Not Resolved]
  - Injection site mass [Not Recovered/Not Resolved]
  - Drug hypersensitivity [None]
